FAERS Safety Report 20552743 (Version 1)
Quarter: 2022Q1

REPORT INFORMATION
  Report Type: Report from Study
  Country: JP (occurrence: JP)
  Receive Date: 20220304
  Receipt Date: 20220304
  Transmission Date: 20220423
  Serious: Yes (Other)
  Sender: FDA-Public Use
  Company Number: JP-RECORDATI RARE DISEASE INC.-2022000761

PATIENT
  Age: 0 Year
  Sex: Male
  Weight: 2.556 kg

DRUGS (10)
  1. NEOPROFEN [Suspect]
     Active Substance: IBUPROFEN LYSINE
     Indication: Patent ductus arteriosus
     Dosage: 25 MILLIGRAM
     Route: 042
     Dates: start: 20210218, end: 20210218
  2. NEOPROFEN [Suspect]
     Active Substance: IBUPROFEN LYSINE
     Dosage: 12.5 MILLIGRAM
     Route: 042
     Dates: start: 20210219, end: 20210219
  3. NEOPROFEN [Suspect]
     Active Substance: IBUPROFEN LYSINE
     Dosage: 12.5 MILLIGRAM
     Route: 042
     Dates: start: 20210220, end: 20210220
  4. NEOPROFEN [Suspect]
     Active Substance: IBUPROFEN LYSINE
     Dosage: 25 MILLIGRAM
     Route: 042
     Dates: start: 20210226, end: 20210226
  5. NEOPROFEN [Suspect]
     Active Substance: IBUPROFEN LYSINE
     Dosage: 12.5 MILLIGRAM
     Route: 042
     Dates: start: 20210227, end: 20210227
  6. NEOPROFEN [Suspect]
     Active Substance: IBUPROFEN LYSINE
     Dosage: 12.5 MILLIGRAM
     Route: 042
     Dates: start: 20210228, end: 20210228
  7. SODIUM CHLORIDE [Concomitant]
     Active Substance: SODIUM CHLORIDE
     Indication: Hyponatraemia
     Dosage: UNK
     Route: 042
     Dates: start: 20210219, end: 20210302
  8. INOVAN [DOPAMINE HYDROCHLORIDE] [Concomitant]
     Indication: Patent ductus arteriosus
     Dosage: UNK
     Route: 042
     Dates: start: 20210222, end: 20210311
  9. INOVAN [DOPAMINE HYDROCHLORIDE] [Concomitant]
     Indication: Urine output decreased
  10. CAFFEINE [Concomitant]
     Active Substance: CAFFEINE
     Indication: Apnoea
     Dosage: UNK
     Route: 042
     Dates: start: 20210223, end: 20210302

REACTIONS (5)
  - Hypercapnia [Recovered/Resolved]
  - Hyperkalaemia [Recovered/Resolved]
  - Apnoea [Recovered/Resolved]
  - Urine output decreased [Recovered/Resolved]
  - Hyponatraemia [Recovered/Resolved]

NARRATIVE: CASE EVENT DATE: 20210218
